FAERS Safety Report 6342517-9 (Version None)
Quarter: 2009Q3

REPORT INFORMATION
  Report Type: 
  Country: None (occurrence: None)
  Receive Date: 20090908
  Receipt Date: 20090901
  Transmission Date: 20100115
  Serious: Yes (Hospitalization)
  Sender: FDA-Public Use
  Company Number: BR-BAYER-200921209LA

PATIENT
  Age: 34 Year
  Sex: Female

DRUGS (2)
  1. BETAFERON [Suspect]
     Indication: RELAPSING-REMITTING MULTIPLE SCLEROSIS
     Dosage: BETAJECT
     Route: 058
     Dates: start: 20080301
  2. FLUOXETINE [Concomitant]
     Indication: DEPRESSION
     Dosage: AT NIGHT
     Route: 048
     Dates: start: 20080301

REACTIONS (6)
  - BACK PAIN [None]
  - FATIGUE [None]
  - GAIT DISTURBANCE [None]
  - INJECTION SITE HAEMATOMA [None]
  - MUSCULAR WEAKNESS [None]
  - PAIN IN EXTREMITY [None]
